FAERS Safety Report 18940492 (Version 1)
Quarter: 2021Q1

REPORT INFORMATION
  Report Type: Spontaneous
  Country: US (occurrence: US)
  Receive Date: 20210225
  Receipt Date: 20210225
  Transmission Date: 20210420
  Serious: Yes (Other)
  Sender: FDA-Public Use
  Company Number: US-COLGATE PALMOLIVE COMPANY-20210200390

PATIENT
  Sex: Male
  Weight: 77.32 kg

DRUGS (2)
  1. COLGATE ESSENTIALS [Suspect]
     Active Substance: SODIUM MONOFLUOROPHOSPHATE
     Dosage: UNKNOWN DOSE, BID
     Dates: start: 20210207
  2. PEPTO?BISMOL [Suspect]
     Active Substance: BISMUTH SUBSALICYLATE

REACTIONS (8)
  - Abdominal pain [Recovering/Resolving]
  - Accidental exposure to product [Unknown]
  - Abdominal pain upper [Recovering/Resolving]
  - Expired product administered [Unknown]
  - Pyrexia [Recovering/Resolving]
  - Malaise [Recovering/Resolving]
  - Faeces discoloured [Recovering/Resolving]
  - Weight increased [Recovering/Resolving]

NARRATIVE: CASE EVENT DATE: 202102
